FAERS Safety Report 7422952-8 (Version None)
Quarter: 2011Q2

REPORT INFORMATION
  Report Type: 
  Country: None (occurrence: None)
  Receive Date: 20110411
  Receipt Date: 20110325
  Transmission Date: 20111010
  Serious: Yes (Other)
  Sender: FDA-Public Use
  Company Number: AUR-APU-2011-01092

PATIENT
  Age: 70 Year
  Sex: Female

DRUGS (3)
  1. VITAMIN (CA2+, MVI, B, D) [Concomitant]
  2. ASPIRIN [Concomitant]
  3. ALENDRONATE SODIUM [Suspect]
     Indication: OSTEOPOROSIS
     Dosage: 70MG-WEEKLY-ORAL
     Route: 048
     Dates: start: 20010306, end: 20110313

REACTIONS (5)
  - CHEST PAIN [None]
  - MUSCULOSKELETAL PAIN [None]
  - MUSCLE SPASMS [None]
  - PAIN [None]
  - DISCOMFORT [None]
